FAERS Safety Report 11812074 (Version 1)
Quarter: 2015Q4

REPORT INFORMATION
  Report Type: Spontaneous
  Country: US (occurrence: US)
  Receive Date: 20151208
  Receipt Date: 20151208
  Transmission Date: 20160305
  Serious: No
  Sender: FDA-Public Use
  Company Number: US-PFIZER INC-2015423527

PATIENT
  Age: 40 Year
  Sex: Female
  Weight: 47.62 kg

DRUGS (6)
  1. REVATIO [Suspect]
     Active Substance: SILDENAFIL CITRATE
     Indication: LUNG DISORDER
     Dosage: UNK
  2. DIGOXEN [Concomitant]
     Active Substance: DIGOXIN
     Indication: FLUID OVERLOAD
     Dosage: 25 MG, 1X/DAY
  3. WARFARIN [Concomitant]
     Active Substance: WARFARIN
     Indication: CARDIAC DISORDER
     Dosage: 5 MG, 1X/DAY
  4. REVATIO [Suspect]
     Active Substance: SILDENAFIL CITRATE
     Indication: SWELLING
  5. REVATIO [Suspect]
     Active Substance: SILDENAFIL CITRATE
     Indication: DYSPNOEA
  6. FUROSEMIDE. [Concomitant]
     Active Substance: FUROSEMIDE
     Indication: CARDIAC DISORDER
     Dosage: 40 MG, UNK(ONCE A DAY AND SOMETIMES HALF)

REACTIONS (1)
  - Product use issue [Unknown]
